FAERS Safety Report 20499919 (Version 10)
Quarter: 2023Q1

REPORT INFORMATION
  Report Type: Report from Study
  Country: CN (occurrence: None)
  Receive Date: 20220222
  Receipt Date: 20230207
  Transmission Date: 20230417
  Serious: Yes (Hospitalization)
  Sender: FDA-Public Use
  Company Number: CN-ROCHE-3025922

PATIENT
  Age: 68 Year
  Sex: Male
  Weight: 59 kg

DRUGS (37)
  1. PLACEBO [Suspect]
     Active Substance: UNSPECIFIED INGREDIENT
     Indication: Non-small cell lung cancer stage IV
     Dosage: ON 28/JAN/2022, LAST DOSE WAS ADMINISTERED PRIOR TO AE.
     Route: 042
     Dates: start: 20220107
  2. CARBOPLATIN [Suspect]
     Active Substance: CARBOPLATIN
     Indication: Non-small cell lung cancer stage IV
     Dosage: ON 28/JAN/2022, LAST DOSE OF 603 MG WAS ADMINISTERED PRIOR TO AE/SAE.
     Route: 042
     Dates: start: 20220107
  3. BEVACIZUMAB [Suspect]
     Active Substance: BEVACIZUMAB
     Indication: Non-small cell lung cancer stage IV
     Dosage: ON 28/JAN/2022, LAST DOSE WAS ADMINISTERED PRIOR TO AE/SAE.?DOSE LAST STUDY DRUG ADMIN PRIOR AE/SAE
     Route: 042
     Dates: start: 20220107
  4. PEMETREXED [Suspect]
     Active Substance: PEMETREXED
     Indication: Non-small cell lung cancer stage IV
     Dosage: ON 28/JAN/2022, LAST DOSE 815 MG WAS ADMINISTERED PRIOR TO AE/SAE.
     Route: 042
     Dates: start: 20220107
  5. THROMBOPOIETIN [Concomitant]
     Active Substance: THROMBOPOIETIN
     Indication: Thrombocytopenia
     Dates: start: 20220210
  6. METHYLPREDNISOLONE SODIUM SUCCINATE [Concomitant]
     Active Substance: METHYLPREDNISOLONE SODIUM SUCCINATE
     Indication: Pneumonia
     Route: 042
     Dates: start: 20220213, end: 20220213
  7. METHYLPREDNISOLONE SODIUM SUCCINATE [Concomitant]
     Active Substance: METHYLPREDNISOLONE SODIUM SUCCINATE
     Route: 042
     Dates: start: 20220215, end: 20220220
  8. CEFTAZIDIME [Concomitant]
     Active Substance: CEFTAZIDIME
     Dates: start: 20220213, end: 20220220
  9. DEXAMETHASONE SODIUM PHOSPHATE [Concomitant]
     Active Substance: DEXAMETHASONE SODIUM PHOSPHATE
     Indication: Hypersensitivity
     Route: 042
     Dates: start: 20220413, end: 20220413
  10. MORPHINE HYDROCHLORIDE [Concomitant]
     Active Substance: MORPHINE HYDROCHLORIDE
     Indication: Pain
     Dates: start: 20220414, end: 20220414
  11. PAPAVERINE HYDROCHLORIDE [Concomitant]
     Active Substance: PAPAVERINE HYDROCHLORIDE
     Dates: start: 20220414, end: 20220417
  12. ROSUVASTATIN CALCIUM [Concomitant]
     Active Substance: ROSUVASTATIN CALCIUM
     Dates: start: 20220412
  13. TRAMADOL HYDROCHLORIDE [Concomitant]
     Active Substance: TRAMADOL HYDROCHLORIDE
     Indication: Pain
     Dates: start: 20220414, end: 20220623
  14. LEUCOGEN [Concomitant]
     Active Substance: LEUCOGEN
     Indication: Granulocytopenia
     Dates: start: 20220108, end: 20220123
  15. LEUCOGEN [Concomitant]
     Active Substance: LEUCOGEN
     Dates: start: 20220129, end: 20220213
  16. ONDANSETRON HYDROCHLORIDE [Concomitant]
     Active Substance: ONDANSETRON HYDROCHLORIDE
     Dates: start: 20220108, end: 20220123
  17. ONDANSETRON HYDROCHLORIDE [Concomitant]
     Active Substance: ONDANSETRON HYDROCHLORIDE
     Dates: start: 20220112, end: 20220112
  18. ONDANSETRON HYDROCHLORIDE [Concomitant]
     Active Substance: ONDANSETRON HYDROCHLORIDE
     Dates: start: 20220129, end: 20220203
  19. LANSOPRAZOLE [Concomitant]
     Active Substance: LANSOPRAZOLE
     Dates: start: 20220108, end: 20220114
  20. LANSOPRAZOLE [Concomitant]
     Active Substance: LANSOPRAZOLE
     Dates: start: 20220129, end: 20220204
  21. DEXAMETHASONE ACETATE [Concomitant]
     Active Substance: DEXAMETHASONE ACETATE
     Route: 048
     Dates: start: 20220127, end: 20220129
  22. TROPISETRON HYDROCHLORIDE [Concomitant]
     Active Substance: TROPISETRON HYDROCHLORIDE
     Dates: start: 20220128, end: 20220128
  23. OPRELVEKIN [Concomitant]
     Active Substance: OPRELVEKIN
     Indication: Thrombocytopenia
     Dates: start: 20220122, end: 20220122
  24. OPRELVEKIN [Concomitant]
     Active Substance: OPRELVEKIN
     Dates: start: 20220209, end: 20220209
  25. ERYTHROPOIETIN [Concomitant]
     Active Substance: ERYTHROPOIETIN
     Indication: Anaemia
     Dates: start: 20220210, end: 20220210
  26. ERYTHROPOIETIN [Concomitant]
     Active Substance: ERYTHROPOIETIN
     Dates: start: 20220212, end: 20220212
  27. ILAPRAZOLE [Concomitant]
     Active Substance: ILAPRAZOLE
     Dates: start: 20220128, end: 20220128
  28. VITAMIN C [Concomitant]
     Active Substance: ASCORBIC ACID
     Dates: start: 20220211, end: 20220220
  29. VITAMIN B6 [Concomitant]
     Active Substance: PYRIDOXINE HYDROCHLORIDE
     Dates: start: 20220211, end: 20220220
  30. ACETYLCYSTEINE [Concomitant]
     Active Substance: ACETYLCYSTEINE
     Dates: start: 20220213, end: 20220213
  31. BUDESONIDE [Concomitant]
     Active Substance: BUDESONIDE
     Dates: start: 20220213, end: 20220213
  32. AMBROXOL HYDROCHLORIDE [Concomitant]
     Active Substance: AMBROXOL HYDROCHLORIDE
     Dates: start: 20220213, end: 20220220
  33. FOLIC ACID [Concomitant]
     Active Substance: FOLIC ACID
     Route: 048
     Dates: start: 20211220, end: 202206
  34. OMEPRAZOLE [Concomitant]
     Active Substance: OMEPRAZOLE
     Dates: start: 20220215, end: 20220220
  35. BETAMETHASONE SODIUM PHOSPHATE [Concomitant]
     Active Substance: BETAMETHASONE SODIUM PHOSPHATE
     Route: 042
     Dates: start: 20220225, end: 20220225
  36. PENPULIMAB [Concomitant]
     Active Substance: PENPULIMAB
     Dates: start: 20220420, end: 20220609
  37. SAFFLOWER EXTRACT AND ACEGLUTAMIDE [Concomitant]
     Dates: start: 20220414, end: 20220417

REACTIONS (3)
  - Neutrophil count decreased [Recovered/Resolved]
  - Immune-mediated lung disease [Not Recovered/Not Resolved]
  - Platelet count decreased [Recovered/Resolved]

NARRATIVE: CASE EVENT DATE: 20220209
